FAERS Safety Report 6027355-9 (Version None)
Quarter: 2009Q1

REPORT INFORMATION
  Report Type: 
  Country: None (occurrence: None)
  Receive Date: 20090105
  Receipt Date: 20081226
  Transmission Date: 20090719
  Serious: Yes (Other)
  Sender: FDA-Public Use
  Company Number: B0551911A

PATIENT
  Age: 69 Year
  Sex: Female

DRUGS (4)
  1. VENTOLIN [Suspect]
     Dosage: 100MCG THREE TIMES PER DAY
     Route: 055
     Dates: start: 19870101
  2. BECOTIDE [Suspect]
     Dosage: 250MCG THREE TIMES PER DAY
     Route: 055
     Dates: start: 19870101
  3. TAREG [Concomitant]
  4. LASER THERAPY [Concomitant]
     Indication: TOOTH DISORDER

REACTIONS (8)
  - ARTERIAL OCCLUSIVE DISEASE [None]
  - BACTERIAL INFECTION [None]
  - DRUG DEPENDENCE [None]
  - MALAISE [None]
  - ORAL CANDIDIASIS [None]
  - RESPIRATORY DISORDER [None]
  - TOOTH DISORDER [None]
  - TOOTH INFECTION [None]
